FAERS Safety Report 7236120-6 (Version None)
Quarter: 2011Q1

REPORT INFORMATION
  Report Type: 
  Country: None (occurrence: None)
  Receive Date: 20110120
  Receipt Date: 20110112
  Transmission Date: 20110831
  Serious: Yes (Death, Other)
  Sender: FDA-Public Use
  Company Number: CA-TEVA-261304USA

PATIENT
  Sex: Female

DRUGS (4)
  1. RISPERIDONE [Suspect]
     Indication: PSYCHOTIC DISORDER
     Dosage: 1 MG IN THE MORNING AND 2 MG AT NIGHT
  2. OLANZAPINE [Concomitant]
  3. VENLAFAXINE [Concomitant]
  4. NORTRIPTYLINE HYDROCHLORIDE [Suspect]
     Indication: PSYCHOTIC DISORDER

REACTIONS (2)
  - HYPERPROLACTINAEMIA [None]
  - PULMONARY EMBOLISM [None]
